FAERS Safety Report 6230649-5 (Version None)
Quarter: 2009Q2

REPORT INFORMATION
  Report Type: 
  Country: None (occurrence: None)
  Receive Date: 20090616
  Receipt Date: 20090609
  Transmission Date: 20091009
  Serious: Yes (Death)
  Sender: FDA-Public Use
  Company Number: US-CELGENEUS-163-20484-09041692

PATIENT
  Sex: Female

DRUGS (1)
  1. INNOHEP [Suspect]
     Route: 058
     Dates: start: 20081118, end: 20090106

REACTIONS (1)
  - MALIGNANT NEOPLASM PROGRESSION [None]
